FAERS Safety Report 21990014 (Version 1)
Quarter: 2023Q1

REPORT INFORMATION
  Report Type: Spontaneous
  Country: US (occurrence: None)
  Receive Date: 20230213
  Receipt Date: 20230213
  Transmission Date: 20230418
  Serious: No
  Sender: FDA-Public Use
  Company Number: None

PATIENT
  Age: 64 Year
  Sex: Male
  Weight: 102.06 kg

DRUGS (27)
  1. CAPECITABINE [Suspect]
     Active Substance: CAPECITABINE
     Indication: Pancreatic carcinoma
     Dosage: FREQUENCY : TWICE A DAY;?
     Route: 048
  2. ACETAMINOPHEN [Concomitant]
     Active Substance: ACETAMINOPHEN
  3. ALBUTEROL [Concomitant]
  4. ARIPIPRAZOLE [Concomitant]
  5. BENZTROPINE [Concomitant]
  6. CALCIUM CARBONATE [Concomitant]
  7. EPINEPHERINE [Concomitant]
  8. FLUTICASONE [Concomitant]
  9. GABAPENTIN [Concomitant]
  10. GLUCERNA [Concomitant]
  11. LIDOCAINE\PRILOCAINE [Concomitant]
     Active Substance: LIDOCAINE\PRILOCAINE
  12. LORAZEPAM [Concomitant]
  13. METOCLOPRAMIDE [Concomitant]
  14. MIRTAZAPINE [Concomitant]
     Active Substance: MIRTAZAPINE
  15. OXYCODONE [Concomitant]
     Active Substance: OXYCODONE
  16. PEPCID [Concomitant]
     Active Substance: FAMOTIDINE
  17. PIOGLITAZONE [Concomitant]
  18. POTASSIUM CHLORIDE [Concomitant]
  19. PROPRANOLOL [Concomitant]
     Active Substance: PROPRANOLOL HYDROCHLORIDE
  20. REXULTI [Concomitant]
     Active Substance: BREXPIPRAZOLE
  21. ROPINIROLE [Concomitant]
  22. ROSUVASTATIN [Concomitant]
  23. SENNOSIDES [Concomitant]
  24. SIMETHICONE [Concomitant]
  25. TIZANIDINE [Concomitant]
  26. TRAZODONE [Concomitant]
  27. VENLAFAXINE [Concomitant]

REACTIONS (1)
  - Hospice care [None]
